FAERS Safety Report 5898505-X (Version None)
Quarter: 2008Q3

REPORT INFORMATION
  Report Type: 
  Country: None (occurrence: None)
  Receive Date: 20080925
  Receipt Date: 20071211
  Transmission Date: 20090109
  Serious: No
  Sender: FDA-Public Use
  Company Number: A0698319A

PATIENT
  Age: 55 Year

DRUGS (3)
  1. WELLBUTRIN XL [Suspect]
     Indication: DEPRESSION
     Dosage: 300MG PER DAY
     Route: 048
     Dates: end: 20071202
  2. CELEXA [Concomitant]
  3. ZYRTEC [Concomitant]

REACTIONS (1)
  - FATIGUE [None]
